FAERS Safety Report 14605349 (Version 1)
Quarter: 2018Q1

REPORT INFORMATION
  Report Type: Other
  Country: US (occurrence: US)
  Receive Date: 20180306
  Receipt Date: 20180306
  Transmission Date: 20180509
  Serious: Yes (Hospitalization)
  Sender: FDA-Public Use
  Company Number: US-WALMART-2043087

PATIENT
  Age: 31 Year
  Sex: Female

DRUGS (1)
  1. EQUATE 3% HYDROGEN PEROXIDE [Suspect]
     Active Substance: HYDROGEN PEROXIDE

REACTIONS (2)
  - Skin discolouration [Recovered/Resolved]
  - Skin burning sensation [Recovered/Resolved]

NARRATIVE: CASE EVENT DATE: 20180225
